FAERS Safety Report 17208442 (Version 1)
Quarter: 2019Q4

REPORT INFORMATION
  Report Type: Spontaneous
  Country: CN (occurrence: CN)
  Receive Date: 20191227
  Receipt Date: 20191227
  Transmission Date: 20200122
  Serious: Yes (Other)
  Sender: FDA-Public Use
  Company Number: ALC2019CN003063

PATIENT
  Age: 2 Month

DRUGS (1)
  1. TEARS NATURALE FORTE [Suspect]
     Active Substance: DEXTRAN 70\GLYCERIN\HYPROMELLOSES
     Indication: PRODUCT USED FOR UNKNOWN INDICATION
     Dosage: UNK
     Route: 065

REACTIONS (2)
  - Foetal growth restriction [Unknown]
  - Foetal heart rate abnormal [Unknown]
